FAERS Safety Report 26090058 (Version 1)
Quarter: 2025Q4

REPORT INFORMATION
  Report Type: Report from Study
  Country: US (occurrence: US)
  Receive Date: 20251126
  Receipt Date: 20251126
  Transmission Date: 20260118
  Serious: Yes (Hospitalization)
  Sender: ABBVIE
  Company Number: US-ABBVIE-6561629

PATIENT
  Age: 84 Year
  Sex: Female
  Weight: 73.935 kg

DRUGS (1)
  1. IMBRUVICA [Suspect]
     Active Substance: IBRUTINIB
     Indication: Central nervous system lymphoma
     Dosage: FORM STRENGTH: 280?FORM STRENGTH UNITS: MILLIGRAM
     Route: 048
     Dates: start: 202008, end: 20251111

REACTIONS (6)
  - Pain in extremity [Recovering/Resolving]
  - Pericarditis [Not Recovered/Not Resolved]
  - Troponin increased [Not Recovered/Not Resolved]
  - Fatigue [Unknown]
  - Arthralgia [Recovering/Resolving]
  - Pain [Recovering/Resolving]

NARRATIVE: CASE EVENT DATE: 20251101
